FAERS Safety Report 24959119 (Version 1)
Quarter: 2025Q1

REPORT INFORMATION
  Report Type: Spontaneous
  Country: IN (occurrence: IN)
  Receive Date: 20250212
  Receipt Date: 20250212
  Transmission Date: 20250408
  Serious: Yes (Other)
  Sender: LUPIN
  Company Number: IN-LUPIN LIMITED-2025-01151

PATIENT

DRUGS (3)
  1. RIFAMPIN [Suspect]
     Active Substance: RIFAMPIN
     Indication: Tuberculosis
     Dosage: 1 DOSAGE FORM, QD
     Route: 048
  2. PYRAZINAMIDE [Concomitant]
     Active Substance: PYRAZINAMIDE
     Indication: Tuberculosis
     Dosage: 1 DOSAGE FORM, QD
     Route: 048
  3. ETHAMBUTOL HYDROCHLORIDE [Concomitant]
     Active Substance: ETHAMBUTOL HYDROCHLORIDE
     Indication: Tuberculosis
     Dosage: 1 DOSAGE FORM, QD
     Route: 048

REACTIONS (3)
  - Liver injury [Not Recovered/Not Resolved]
  - Deafness [Not Recovered/Not Resolved]
  - Menstruation irregular [Not Recovered/Not Resolved]
